FAERS Safety Report 7507987-9 (Version None)
Quarter: 2011Q2

REPORT INFORMATION
  Report Type: 
  Country: None (occurrence: None)
  Receive Date: 20110519
  Receipt Date: 20110504
  Transmission Date: 20111010
  Serious: Yes (Hospitalization)
  Sender: FDA-Public Use
  Company Number: 2011MA005040

PATIENT
  Age: 66 Year
  Sex: Female

DRUGS (7)
  1. DONEPEZIL HYDROCHLORIDE [Concomitant]
  2. MEMANTINE HYDROCHLORIDE [Concomitant]
  3. AMLODIPINE [Concomitant]
  4. ATORVASTATIN CALCIUM [Concomitant]
  5. DULOXETINE HYDOCHLORIDE [Concomitant]
  6. METOPROLOL SUCCINATE [Concomitant]
  7. CLONIDINE HCL [Suspect]
     Indication: HYPERTENSION
     Dosage: 0.2 MG:TID:PO
     Route: 048

REACTIONS (8)
  - ASTHENIA [None]
  - ELECTROCARDIOGRAM ST-T CHANGE [None]
  - PYREXIA [None]
  - QRS AXIS ABNORMAL [None]
  - BLOOD PRESSURE INADEQUATELY CONTROLLED [None]
  - ACUTE MYOCARDIAL INFARCTION [None]
  - DYSPNOEA [None]
  - BLOOD CREATINE PHOSPHOKINASE INCREASED [None]
